FAERS Safety Report 4665500-8 (Version None)
Quarter: 2005Q2

REPORT INFORMATION
  Report Type: 
  Country: None (occurrence: None)
  Receive Date: 20050519
  Receipt Date: 20050222
  Transmission Date: 20051028
  Serious: No
  Sender: FDA-Public Use
  Company Number: US-BRISTOL-MYERS SQUIBB COMPANY-12871125

PATIENT
  Sex: Female

DRUGS (1)
  1. CYTOXAN [Suspect]
     Route: 042
     Dates: start: 20050218, end: 20050218

REACTIONS (1)
  - HEADACHE [None]
